FAERS Safety Report 9999000 (Version 1)
Quarter: 2014Q1

REPORT INFORMATION
  Report Type: Spontaneous
  Country: US (occurrence: None)
  Receive Date: 20140310
  Receipt Date: 20140310
  Transmission Date: 20141002
  Serious: Yes (Other)
  Sender: FDA-Public Use
  Company Number: ADR-2013-02162

PATIENT
  Sex: Male

DRUGS (2)
  1. LIORESAL [Suspect]
     Indication: MUSCLE SPASTICITY
  2. ORAL BACLOFEN [Suspect]

REACTIONS (17)
  - Muscle spasticity [None]
  - Medical device complication [None]
  - Complication of device insertion [None]
  - Treatment noncompliance [None]
  - Device malfunction [None]
  - Device connection issue [None]
  - Device extrusion [None]
  - Device breakage [None]
  - Wound secretion [None]
  - Incorrect route of drug administration [None]
  - Abnormal behaviour [None]
  - Purulence [None]
  - Implant site discharge [None]
  - Device related infection [None]
  - Underdose [None]
  - Drug withdrawal syndrome [None]
  - Wound dehiscence [None]
